FAERS Safety Report 6997500-7 (Version None)
Quarter: 2010Q3

REPORT INFORMATION
  Report Type: 
  Country: None (occurrence: None)
  Receive Date: 20100918
  Receipt Date: 20091019
  Transmission Date: 20110219
  Serious: Yes (Hospitalization, Other)
  Sender: FDA-Public Use
  Company Number: US-WYE-H11690309

PATIENT
  Sex: Male
  Weight: 95.34 kg

DRUGS (4)
  1. PRISTIQ [Suspect]
     Indication: DEPRESSION
     Route: 048
     Dates: start: 20090401, end: 20090505
  2. PRISTIQ [Suspect]
     Indication: ANXIETY
  3. PRISTIQ [Suspect]
     Indication: BIPOLAR DISORDER
  4. VALIUM [Concomitant]
     Indication: ANXIETY
     Dosage: UNKNOWN PRN DOSE

REACTIONS (13)
  - AMNESIA [None]
  - CONSTIPATION [None]
  - CONVULSION [None]
  - FEELING ABNORMAL [None]
  - GRAND MAL CONVULSION [None]
  - HYPOHIDROSIS [None]
  - MOOD ALTERED [None]
  - MYALGIA [None]
  - PYREXIA [None]
  - SEROTONIN SYNDROME [None]
  - UNEVALUABLE EVENT [None]
  - VOMITING [None]
  - WEIGHT DECREASED [None]
